FAERS Safety Report 21822066 (Version 8)
Quarter: 2024Q1

REPORT INFORMATION
  Report Type: Spontaneous
  Country: US (occurrence: US)
  Receive Date: 20230105
  Receipt Date: 20240307
  Transmission Date: 20240410
  Serious: No
  Sender: FDA-Public Use
  Company Number: US-BRISTOL-MYERS SQUIBB COMPANY-2023-001422

PATIENT
  Age: 52 Year
  Sex: Male

DRUGS (2)
  1. SPRYCEL [Suspect]
     Active Substance: DASATINIB
     Indication: Chronic myeloid leukaemia
     Dosage: BATCH NUM: CMGVKA EXP DATE: 30-APR-2025
     Route: 048
     Dates: start: 20221117
  2. SPRYCEL [Suspect]
     Active Substance: DASATINIB
     Route: 048
     Dates: start: 202211

REACTIONS (3)
  - Fatigue [Unknown]
  - Malaise [Unknown]
  - Abdominal pain [Unknown]
